FAERS Safety Report 4961115-2 (Version None)
Quarter: 2006Q1

REPORT INFORMATION
  Report Type: 
  Country: None (occurrence: None)
  Receive Date: 20060328
  Receipt Date: 20060315
  Transmission Date: 20060701
  Serious: Yes (Hospitalization, Other)
  Sender: FDA-Public Use
  Company Number: 2005081366

PATIENT
  Age: 58 Year
  Sex: Female

DRUGS (4)
  1. CELEBREX [Suspect]
     Indication: ARTHRITIS
     Dosage: 200 MG (200 MG, 1 IN 1 D), ORAL
     Route: 048
  2. METEOSPASMYL (ALVERINE CITRATE, DL-METHIONINE) [Concomitant]
  3. KAOLOGEAIS (KAOLIN, MAGNESIUM OXIDE, MAGNESIUM SULFATE, MEPROBAMATE, S [Concomitant]
  4. SULPIRIDE (SULPIRIDE) [Concomitant]

REACTIONS (3)
  - HYPOTENSION [None]
  - TACHYCARDIA [None]
  - VERTIGO [None]
